FAERS Safety Report 17998605 (Version 1)
Quarter: 2020Q3

REPORT INFORMATION
  Report Type: Spontaneous
  Country: US (occurrence: US)
  Receive Date: 20200709
  Receipt Date: 20200709
  Transmission Date: 20201103
  Serious: No
  Sender: FDA-Public Use
  Company Number: US-GLENMARK PHARMACEUTICALS-2019GMK043027

PATIENT

DRUGS (3)
  1. LOSARTAN. [Concomitant]
     Active Substance: LOSARTAN
     Indication: HYPERTENSION
     Dosage: 25MG OR 10MG
     Route: 065
  2. MOMETASONE FUROATE CREAM USP, 0.1% [Suspect]
     Active Substance: MOMETASONE FUROATE
     Indication: RASH PRURITIC
     Dosage: UNK, BID (AS NECESSARY)
     Route: 061
  3. PERMETHRIN. [Concomitant]
     Active Substance: PERMETHRIN
     Indication: MITE ALLERGY
     Dosage: UNK, QW (ONCE A WEEK)
     Route: 065

REACTIONS (3)
  - No adverse event [Unknown]
  - Accidental exposure to product [Unknown]
  - Product selection error [Unknown]

NARRATIVE: CASE EVENT DATE: 20190830
